FAERS Safety Report 5254469-3 (Version None)
Quarter: 2007Q1

REPORT INFORMATION
  Report Type: 
  Country: None (occurrence: None)
  Receive Date: 20061201
  Receipt Date: 20060905
  Transmission Date: 20070707
  Serious: No
  Sender: FDA-Public Use
  Company Number: 2006PV020745

PATIENT
  Age: 58 Year
  Sex: Male
  Weight: 126.5536 kg

DRUGS (6)
  1. BYETTA [Suspect]
     Indication: DIABETES MELLITUS NON-INSULIN-DEPENDENT
     Dosage: 5 MCG;BID;SC
     Route: 058
     Dates: start: 20060801
  2. GLIPIZIDE [Concomitant]
  3. 70/30 [Concomitant]
  4. HYDROCHLOROTHIAZIDE [Concomitant]
  5. ENALAPRIL MALEATE [Concomitant]
  6. LASIX [Concomitant]

REACTIONS (5)
  - CONDITION AGGRAVATED [None]
  - FLUID RETENTION [None]
  - INCREASED APPETITE [None]
  - POLLAKIURIA [None]
  - WEIGHT INCREASED [None]
